FAERS Safety Report 15633733 (Version 2)
Quarter: 2019Q1

REPORT INFORMATION
  Report Type: Spontaneous
  Country: US (occurrence: US)
  Receive Date: 20181119
  Receipt Date: 20190204
  Transmission Date: 20190417
  Serious: Yes (Other)
  Sender: FDA-Public Use
  Company Number: US-SA-2018SA314387

PATIENT
  Age: 64 Year
  Sex: Female
  Weight: 130.1 kg

DRUGS (3)
  1. TAXOTERE [Suspect]
     Active Substance: DOCETAXEL
     Indication: BREAST CANCER
     Dosage: 132 MG-165 MG
     Route: 042
     Dates: start: 20080130, end: 20080130
  2. TAXOTERE [Suspect]
     Active Substance: DOCETAXEL
     Dosage: 132 MG-165 MG
     Route: 042
     Dates: start: 20080410, end: 20080410
  3. NEOSAR [Concomitant]
     Active Substance: CYCLOPHOSPHAMIDE
     Dosage: UNK
     Route: 065

REACTIONS (1)
  - Alopecia [Recovering/Resolving]
